FAERS Safety Report 17786403 (Version 4)
Quarter: 2020Q3

REPORT INFORMATION
  Report Type: Report from Study
  Country: US (occurrence: US)
  Receive Date: 20200514
  Receipt Date: 20200807
  Transmission Date: 20201102
  Serious: No
  Sender: FDA-Public Use
  Company Number: NVSC2020US131307

PATIENT
  Sex: Female

DRUGS (1)
  1. COSENTYX [Suspect]
     Active Substance: SECUKINUMAB
     Indication: PSORIATIC ARTHROPATHY
     Dosage: 150 MG, Q4W (EVERY 28 DAYS)
     Route: 058

REACTIONS (3)
  - Inappropriate schedule of product administration [Unknown]
  - Memory impairment [Recovering/Resolving]
  - Injection site bruising [Recovering/Resolving]
